FAERS Safety Report 10248869 (Version 1)
Quarter: 2014Q2

REPORT INFORMATION
  Report Type: Spontaneous
  Country: US (occurrence: US)
  Receive Date: 20140620
  Receipt Date: 20140620
  Transmission Date: 20141212
  Serious: No
  Sender: FDA-Public Use
  Company Number: US-JNJFOC-20140605502

PATIENT
  Sex: Male
  Weight: 120.2 kg

DRUGS (4)
  1. DURAGESIC [Suspect]
     Indication: SPINAL OPERATION
     Route: 062
  2. DURAGESIC [Suspect]
     Indication: SPINAL OPERATION
     Route: 062
  3. PERCOCET [Suspect]
     Indication: BREAKTHROUGH PAIN
     Route: 065
     Dates: end: 2014
  4. RAMIPRIL [Concomitant]
     Indication: BLOOD PRESSURE
     Route: 048
     Dates: start: 2012

REACTIONS (4)
  - Breakthrough pain [Not Recovered/Not Resolved]
  - Product adhesion issue [Unknown]
  - Wrong technique in drug usage process [Unknown]
  - Wrong technique in drug usage process [Unknown]
